FAERS Safety Report 15980958 (Version 2)
Quarter: 2019Q1

REPORT INFORMATION
  Report Type: Spontaneous
  Country: US (occurrence: US)
  Receive Date: 20190219
  Receipt Date: 20190314
  Transmission Date: 20190418
  Serious: No
  Sender: FDA-Public Use
  Company Number: US-PFIZER INC-2019069661

PATIENT
  Age: 58 Year
  Sex: Female
  Weight: 34.14 kg

DRUGS (1)
  1. TOLTERODINE TARTRATE. [Suspect]
     Active Substance: TOLTERODINE TARTRATE
     Dosage: UNK

REACTIONS (3)
  - Diarrhoea [Unknown]
  - Malaise [Unknown]
  - Nausea [Unknown]
